FAERS Safety Report 7215442-9 (Version None)
Quarter: 2011Q1

REPORT INFORMATION
  Report Type: 
  Country: None (occurrence: None)
  Receive Date: 20110107
  Receipt Date: 20101230
  Transmission Date: 20110831
  Serious: Yes (Death)
  Sender: FDA-Public Use
  Company Number: DZ-ROCHE-737751

PATIENT
  Age: 75 Year
  Sex: Female

DRUGS (2)
  1. HERCEPTIN [Suspect]
     Dosage: PER CURE
     Route: 042
     Dates: start: 20081030, end: 20090101
  2. HERCEPTIN [Suspect]
     Dosage: PER CURE
     Route: 042

REACTIONS (1)
  - BREAST CANCER METASTATIC [None]
